FAERS Safety Report 9149866 (Version 8)
Quarter: 2014Q1

REPORT INFORMATION
  Report Type: Spontaneous
  Country: US (occurrence: None)
  Receive Date: 20130129
  Receipt Date: 20140127
  Transmission Date: 20141002
  Serious: Yes (Hospitalization)
  Sender: FDA-Public Use
  Company Number: 2013US001025

PATIENT
  Age: 31 Year
  Sex: Female

DRUGS (6)
  1. PONATINIB [Suspect]
     Indication: CHRONIC MYELOID LEUKAEMIA
     Route: 048
     Dates: start: 20120503, end: 20130110
  2. ALREX (LOTEPREDNOL ETABONATE) [Concomitant]
  3. CRESTOR (ROSUVASTATIN CALCIUM) [Concomitant]
  4. HYDROCHLOROTHIAZIDE (HYDROCHLOROTHIAZIDE) [Concomitant]
  5. IBUPROFEN (IBUPROFEN) [Concomitant]
  6. LISINOPRIL (LISINOPRIL) [Concomitant]

REACTIONS (21)
  - Convulsion [None]
  - Transient ischaemic attack [None]
  - Posterior reversible encephalopathy syndrome [None]
  - Nuclear magnetic resonance imaging brain abnormal [None]
  - Metastases to meninges [None]
  - Metastases to central nervous system [None]
  - Tinnitus [None]
  - Headache [None]
  - Confusional state [None]
  - Hypoaesthesia [None]
  - Paraesthesia [None]
  - Paraesthesia oral [None]
  - Hypoaesthesia oral [None]
  - Panic attack [None]
  - Gastric disorder [None]
  - Malaise [None]
  - Vertigo [None]
  - Blood pressure increased [None]
  - Dizziness [None]
  - Amnesia [None]
  - Cerebral artery stenosis [None]
